FAERS Safety Report 10173643 (Version 1)
Quarter: 2014Q2

REPORT INFORMATION
  Report Type: Spontaneous
  Country: US (occurrence: None)
  Receive Date: 20140514
  Receipt Date: 20140514
  Transmission Date: 20141212
  Serious: Yes (Life-Threatening, Hospitalization, Disabling)
  Sender: FDA-Public Use
  Company Number: None

PATIENT
  Age: 41 Year
  Sex: Female
  Weight: 71.67 kg

DRUGS (1)
  1. MIRALAX [Suspect]
     Indication: COLONOSCOPY
     Dosage: MYRSLAC, ONCE DAILY, TAKEN BY MOUTH
     Route: 048

REACTIONS (4)
  - Gastrointestinal pain [None]
  - Abdominal pain [None]
  - Vomiting [None]
  - Clostridium difficile infection [None]
